FAERS Safety Report 9125417 (Version 2)
Quarter: 2013Q2

REPORT INFORMATION
  Report Type: Spontaneous
  Country: US (occurrence: US)
  Receive Date: 20130117
  Receipt Date: 20130423
  Transmission Date: 20140414
  Serious: Yes (Hospitalization)
  Sender: FDA-Public Use
  Company Number: US-BRISTOL-MYERS SQUIBB COMPANY-17120833

PATIENT
  Age: 68 Year
  Sex: Male

DRUGS (1)
  1. YERVOY [Suspect]
     Indication: METASTATIC MALIGNANT MELANOMA
     Dosage: 5OCT12 AND 26OCT12?NO INF: 3?4 DOSES
     Route: 042
     Dates: start: 20120914

REACTIONS (2)
  - Metastatic malignant melanoma [Unknown]
  - Hypopituitarism [Unknown]
